FAERS Safety Report 9540682 (Version 2)
Quarter: 2013Q4

REPORT INFORMATION
  Report Type: Spontaneous
  Country: JP (occurrence: JP)
  Receive Date: 20130920
  Receipt Date: 20131004
  Transmission Date: 20140711
  Serious: Yes (Hospitalization, Other)
  Sender: FDA-Public Use
  Company Number: JP-ASTRAZENECA-2013SE69436

PATIENT
  Age: 80 Year
  Sex: Female
  Weight: 57 kg

DRUGS (6)
  1. XYLOCAINE [Suspect]
     Indication: ANAESTHESIA
     Route: 053
  2. XYLOCAINE [Suspect]
     Indication: ANAESTHESIA
  3. ANAPEINE [Suspect]
     Indication: ANAESTHESIA
     Route: 053
  4. ANAPEINE [Suspect]
     Indication: ANAESTHESIA
     Dosage: 2 MG/ML, 30 MG
     Route: 053
  5. FLURBIPROFEN [Concomitant]
     Indication: ANALGESIC THERAPY
     Route: 042
  6. PENTAZOCINE [Concomitant]
     Indication: ANALGESIC THERAPY
     Route: 042

REACTIONS (5)
  - Toxicity to various agents [Unknown]
  - Depressed level of consciousness [Recovered/Resolved]
  - Bradycardia [Unknown]
  - Atrioventricular block [Recovering/Resolving]
  - Overdose [Unknown]
